FAERS Safety Report 7309118-7 (Version None)
Quarter: 2011Q1

REPORT INFORMATION
  Report Type: 
  Country: None (occurrence: None)
  Receive Date: 20110211
  Receipt Date: 20110203
  Transmission Date: 20110831
  Serious: Yes (Death, Hospitalization)
  Sender: FDA-Public Use
  Company Number: TCI2011A00228

PATIENT
  Age: 61 Year
  Sex: Male

DRUGS (6)
  1. LEVEMIR (INSULIN DETERMIR) [Concomitant]
  2. METFORMIN HCL [Concomitant]
  3. AMARYL [Concomitant]
  4. ACTOS [Suspect]
     Indication: TYPE 2 DIABETES MELLITUS
     Dosage: 30 MG (30 MG,1 D) PER ORAL
     Route: 048
     Dates: start: 20090907, end: 20100318
  5. BASTAMION (VOGLIBOSE) [Concomitant]
  6. DIOVAN [Concomitant]

REACTIONS (1)
  - BILE DUCT CANCER [None]
